FAERS Safety Report 10540600 (Version 2)
Quarter: 2014Q4

REPORT INFORMATION
  Report Type: Report from Study
  Country: US (occurrence: US)
  Receive Date: 20141024
  Receipt Date: 20141024
  Transmission Date: 20150529
  Serious: No
  Sender: FDA-Public Use
  Company Number: US-ABBVIE-08P-163-0463776-00

PATIENT
  Age: 22 Year
  Sex: Female

DRUGS (5)
  1. MACROBID [Suspect]
     Active Substance: NITROFURANTOIN\NITROFURANTOIN MONOHYDRATE
     Indication: PRODUCT USED FOR UNKNOWN INDICATION
  2. KALETRA [Suspect]
     Active Substance: LOPINAVIR\RITONAVIR
     Indication: ANTIRETROVIRAL THERAPY
     Dosage: 2 DF TWICE DAILY
     Route: 048
     Dates: start: 20071003
  3. RETROVIR [Suspect]
     Active Substance: ZIDOVUDINE
     Route: 042
     Dates: start: 20080228, end: 20080228
  4. COMBIVIR [Suspect]
     Active Substance: LAMIVUDINE\ZIDOVUDINE
     Indication: ANTIRETROVIRAL THERAPY
     Route: 048
     Dates: start: 20071003
  5. RETROVIR [Suspect]
     Active Substance: ZIDOVUDINE
     Indication: ANTIRETROVIRAL THERAPY
     Route: 042
     Dates: start: 20080228, end: 20080228

REACTIONS (3)
  - Urinary tract infection [Unknown]
  - Streptococcus test positive [Unknown]
  - Premature rupture of membranes [Unknown]
